FAERS Safety Report 7765874-5 (Version None)
Quarter: 2011Q3

REPORT INFORMATION
  Report Type: 
  Country: None (occurrence: None)
  Receive Date: 20110921
  Receipt Date: 20110908
  Transmission Date: 20111222
  Serious: Yes (Other)
  Sender: FDA-Public Use
  Company Number: US-ELI_LILLY_AND_COMPANY-US201109002855

PATIENT
  Sex: Male

DRUGS (7)
  1. CYMBALTA [Suspect]
     Dosage: 30 MG, QD
     Dates: start: 20110301, end: 20110801
  2. LYRICA [Concomitant]
     Dosage: UNK
     Dates: start: 20110201
  3. CYMBALTA [Suspect]
     Indication: BACK PAIN
     Dosage: 60 MG, QD
     Dates: start: 20110201, end: 20110301
  4. TRAMADOL HCL [Concomitant]
  5. ALCOHOL [Concomitant]
  6. MELOXICAM [Concomitant]
  7. ELAVIL [Concomitant]
     Dosage: UNK

REACTIONS (23)
  - NAUSEA [None]
  - HEPATIC ENZYME INCREASED [None]
  - DYSGEUSIA [None]
  - MALAISE [None]
  - HYPERHIDROSIS [None]
  - AMNESIA [None]
  - FEELING ABNORMAL [None]
  - INTENTIONAL DRUG MISUSE [None]
  - HEAD DISCOMFORT [None]
  - HEADACHE [None]
  - DRUG DOSE OMISSION [None]
  - DRUG WITHDRAWAL SYNDROME [None]
  - SINUSITIS [None]
  - MUSCLE TWITCHING [None]
  - BLOOD ALKALINE PHOSPHATASE INCREASED [None]
  - CHEST DISCOMFORT [None]
  - FALL [None]
  - ALCOHOL USE [None]
  - LOSS OF CONSCIOUSNESS [None]
  - VISION BLURRED [None]
  - BLOOD ALKALINE PHOSPHATASE [None]
  - TREMOR [None]
  - BALANCE DISORDER [None]
